FAERS Safety Report 4578342-9 (Version None)
Quarter: 2005Q1

REPORT INFORMATION
  Report Type: 
  Country: None (occurrence: None)
  Receive Date: 20050202
  Receipt Date: 20050202
  Transmission Date: 20050727
  Serious: Yes (Other)
  Sender: FDA-Public Use
  Company Number: None

PATIENT
  Sex: Male

DRUGS (2)
  1. PAXIL [Suspect]
     Indication: AUTISM
     Dosage: 10 MG
     Dates: start: 20000515
  2. PAXIL [Suspect]
     Indication: IMPULSE-CONTROL DISORDER
     Dosage: 10 MG
     Dates: start: 20000515

REACTIONS (1)
  - NO ADVERSE EFFECT [None]
